FAERS Safety Report 5002395-7 (Version None)
Quarter: 2006Q2

REPORT INFORMATION
  Report Type: 
  Country: None (occurrence: None)
  Receive Date: 20060512
  Receipt Date: 20060501
  Transmission Date: 20061013
  Serious: Yes (Other)
  Sender: FDA-Public Use
  Company Number: 2006US-02169

PATIENT
  Age: 15 Year
  Sex: Female

DRUGS (3)
  1. ISOTRETINOIN [Suspect]
     Dosage: 40 MG, QOD, SEE IMAGE
     Dates: start: 20060112, end: 20060424
  2. ISOTRETINOIN [Suspect]
     Dosage: 40 MG, QOD, SEE IMAGE
     Dates: start: 20060112, end: 20060424
  3. BIRTH CONTROL PILL [Concomitant]

REACTIONS (1)
  - NEPHROTIC SYNDROME [None]
